FAERS Safety Report 10869924 (Version 1)
Quarter: 2015Q1

REPORT INFORMATION
  Report Type: Spontaneous
  Country: US (occurrence: None)
  Receive Date: 20150219
  Receipt Date: 20150219
  Transmission Date: 20150721
  Serious: Yes (Death, Other)
  Sender: FDA-Public Use
  Company Number: RAP-0308-2014

PATIENT
  Age: 27 Year
  Sex: Male

DRUGS (1)
  1. PROCYSBI DELAYED-RELEASE [Suspect]
     Active Substance: CYSTEAMINE BITARTRATE
     Indication: CYSTINOSIS
     Dosage: 1950 MG (975 MG, 1 IN 12 HR)
     Route: 048
     Dates: start: 201411, end: 201501

REACTIONS (1)
  - Vomiting [None]

NARRATIVE: CASE EVENT DATE: 20150109
